FAERS Safety Report 7815112-X (Version None)
Quarter: 2011Q4

REPORT INFORMATION
  Report Type: 
  Country: None (occurrence: None)
  Receive Date: 20111014
  Receipt Date: 20111004
  Transmission Date: 20120403
  Serious: Yes (Other)
  Sender: FDA-Public Use
  Company Number: DK-JNJFOC-20111001842

PATIENT
  Sex: Female

DRUGS (2)
  1. REMICADE [Suspect]
     Indication: RHEUMATOID ARTHRITIS
     Dosage: 200MG 0, 2, 4, +4
     Route: 042
     Dates: start: 20051011
  2. METHOTREXATE [Concomitant]
     Route: 048
     Dates: start: 20050419

REACTIONS (1)
  - BREAST CANCER [None]
